FAERS Safety Report 4583832-9 (Version None)
Quarter: 2005Q1

REPORT INFORMATION
  Report Type: 
  Country: None (occurrence: None)
  Receive Date: 20050211
  Receipt Date: 20050131
  Transmission Date: 20050727
  Serious: Yes (Hospitalization)
  Sender: FDA-Public Use
  Company Number: 2005022706

PATIENT
  Age: 82 Year
  Sex: Female

DRUGS (5)
  1. AROMASIN [Suspect]
     Indication: BREAST CANCER FEMALE
     Dosage: 25 MG (25 MG, 1 IN 1 D), ORAL
     Route: 048
     Dates: end: 20040527
  2. RANITIDINE [Suspect]
     Indication: GASTRIC ULCER
     Dosage: 300 MG (INTERVAL:  EVERY DAY), ORAL
     Route: 048
     Dates: start: 20040521, end: 20040530
  3. PERINDOPRIL (PERINDOPRIL) [Suspect]
     Indication: ESSENTIAL HYPERTENSION
     Dosage: 4 MG (4 MG, 1 IN 1 D), ORAL
     Route: 048
     Dates: start: 20040522, end: 20040531
  4. AMIODARONE HCL [Concomitant]
  5. FLUINDIONE (FLUINDIONE) [Concomitant]

REACTIONS (3)
  - LEUKOPENIA [None]
  - NEUTROPENIA [None]
  - RESPIRATORY FAILURE [None]
